FAERS Safety Report 8102553-9 (Version None)
Quarter: 2012Q1

REPORT INFORMATION
  Report Type: 
  Country: None (occurrence: None)
  Receive Date: 20120126
  Receipt Date: 20120112
  Transmission Date: 20120608
  Serious: Yes (Other)
  Sender: FDA-Public Use
  Company Number: 2011P1015246

PATIENT
  Age: 55 Year
  Sex: Female
  Weight: 42.1845 kg

DRUGS (4)
  1. XANAX [Concomitant]
  2. FENTANYL-100 [Suspect]
     Indication: FIBROMYALGIA
     Dosage: 1 PATCH;Q96H;TDER
     Route: 062
     Dates: start: 20100101
  3. FENTANYL-100 [Suspect]
     Indication: PAIN
     Dosage: 1 PATCH;Q96H;TDER
     Route: 062
     Dates: start: 20100101
  4. ATIVAN [Concomitant]

REACTIONS (6)
  - FALL [None]
  - PRODUCT QUALITY ISSUE [None]
  - GAIT DISTURBANCE [None]
  - PRODUCT SUBSTITUTION ISSUE [None]
  - SUICIDAL IDEATION [None]
  - DRUG EFFECT DECREASED [None]
